FAERS Safety Report 5110967-4 (Version None)
Quarter: 2006Q3

REPORT INFORMATION
  Report Type: 
  Country: None (occurrence: None)
  Receive Date: 20060922
  Receipt Date: 20030905
  Transmission Date: 20061208
  Serious: No
  Sender: FDA-Public Use
  Company Number: US-GLAXOSMITHKLINE-A0424816A

PATIENT
  Age: 48 Year
  Sex: Male

DRUGS (1)
  1. ABREVA [Suspect]
     Dates: start: 20030905, end: 20030905

REACTIONS (8)
  - APPLICATION SITE ERYTHEMA [None]
  - APPLICATION SITE IRRITATION [None]
  - APPLICATION SITE PRURITUS [None]
  - DIARRHOEA [None]
  - HEART RATE INCREASED [None]
  - HYPERSENSITIVITY [None]
  - NAUSEA [None]
  - OCULAR HYPERAEMIA [None]
